FAERS Safety Report 8905927 (Version 2)
Quarter: 2013Q1

REPORT INFORMATION
  Report Type: Report from Study
  Country: CA (occurrence: CA)
  Receive Date: 20121111
  Receipt Date: 20130213
  Transmission Date: 20140127
  Serious: Yes (Hospitalization)
  Sender: FDA-Public Use
  Company Number: PHHY2012CA103224

PATIENT
  Age: 38 Year
  Sex: Male

DRUGS (7)
  1. CLOZARIL [Suspect]
     Dosage: 212.5 MG UNK
     Route: 048
     Dates: start: 20111027
  2. EPIVAL [Concomitant]
  3. REACTINE                                /CAN/ [Concomitant]
  4. PANTOLOC ^BYK GULDEN^ [Concomitant]
  5. COLACE [Concomitant]
  6. SENOKOT                                 /UNK/ [Concomitant]
  7. NOVO-GESIC [Concomitant]

REACTIONS (1)
  - Cellulitis orbital [Unknown]
